FAERS Safety Report 5700569-0 (Version None)
Quarter: 2008Q2

REPORT INFORMATION
  Report Type: 
  Country: None (occurrence: None)
  Receive Date: 20080410
  Receipt Date: 20080401
  Transmission Date: 20081010
  Serious: Yes (Hospitalization)
  Sender: FDA-Public Use
  Company Number: US-JNJFOC-20080401009

PATIENT

DRUGS (2)
  1. RISPERDAL CONSTA [Suspect]
     Indication: DRUG USE FOR UNKNOWN INDICATION
     Dosage: 100 MG TOTAL GIVEN IN THREE DAYS
     Route: 030
  2. DEPAKOTE [Concomitant]

REACTIONS (2)
  - ACCIDENTAL OVERDOSE [None]
  - HOSPITALISATION [None]
